FAERS Safety Report 10579954 (Version 6)
Quarter: 2015Q3

REPORT INFORMATION
  Report Type: Report from Study
  Country: US (occurrence: US)
  Receive Date: 20141112
  Receipt Date: 20150721
  Transmission Date: 20151125
  Serious: Yes (Hospitalization, Other)
  Sender: FDA-Public Use
  Company Number: US-BAYER-2014-153589

PATIENT
  Age: 78 Year
  Sex: Male
  Weight: 65 kg

DRUGS (25)
  1. LATANOPROST. [Concomitant]
     Active Substance: LATANOPROST
     Indication: GLAUCOMA
     Dosage: 1 DROP
     Route: 061
     Dates: start: 201407
  2. DEXAMETHASONE. [Concomitant]
     Active Substance: DEXAMETHASONE
     Indication: PROSTATE CANCER STAGE IV
     Dosage: 0.75 MG, QD
     Dates: start: 20121115
  3. XALATAN [Concomitant]
     Active Substance: LATANOPROST
     Dosage: 1 DROP EACH EYE, QD
     Route: 047
  4. ZANTAC [Concomitant]
     Active Substance: RANITIDINE HYDROCHLORIDE
     Indication: DYSPEPSIA
     Dosage: 150 MG, QD, PRN
     Route: 048
  5. RADIUM-223 DICHLORIDE [Suspect]
     Active Substance: RADIUM RA-223 DICHLORIDE
     Indication: METASTASES TO BONE
     Dosage: 50 KBQ/KG
     Route: 042
     Dates: start: 20140806, end: 20140806
  6. PERCOCET [Concomitant]
     Active Substance: ACETAMINOPHEN\OXYCODONE HYDROCHLORIDE
     Dosage: 1 TAB (5/325 MG) EVERY 4-6 HOURS, PRN
     Route: 048
  7. KADIAN [Concomitant]
     Active Substance: MORPHINE SULFATE
     Dosage: 30 MG, BID
     Route: 048
  8. MS CONTIN [Concomitant]
     Active Substance: MORPHINE SULFATE
     Dosage: 15 MG, BID
     Route: 048
  9. ACETAMINOPHEN. [Concomitant]
     Active Substance: ACETAMINOPHEN
     Dosage: 500 MG, PRN
     Dates: start: 201403
  10. XARELTO [Concomitant]
     Active Substance: RIVAROXABAN
     Dosage: 20 MG, HS
     Route: 048
  11. RADIUM-223 DICHLORIDE [Suspect]
     Active Substance: RADIUM RA-223 DICHLORIDE
     Indication: PROSTATE CANCER STAGE IV
     Dosage: 50 KBQ/KG
     Route: 042
     Dates: start: 20140711, end: 20140711
  12. COUMADIN [Concomitant]
     Active Substance: WARFARIN SODIUM
     Dosage: 12.5 MG, QD
     Route: 048
  13. PRED FORTE [Concomitant]
     Active Substance: PREDNISOLONE ACETATE
     Dosage: 1 DROP EACH EYE, BID
     Route: 047
  14. CHLORTHALIDONE. [Concomitant]
     Active Substance: CHLORTHALIDONE
     Indication: HYPERTENSION
     Dosage: 1 TAB
     Route: 048
     Dates: start: 2010
  15. XANAX [Concomitant]
     Active Substance: ALPRAZOLAM
     Dosage: 0.25 MG, UNK
     Route: 048
  16. RADIUM-223 DICHLORIDE [Suspect]
     Active Substance: RADIUM RA-223 DICHLORIDE
     Indication: PROSTATE CANCER STAGE IV
     Dosage: 50 KBQ/KG
     Route: 042
     Dates: start: 20140912, end: 20140912
  17. ALPRAZOLAM. [Concomitant]
     Active Substance: ALPRAZOLAM
     Indication: ANXIETY
     Dosage: 1 MG DAILY
     Route: 048
     Dates: start: 2014
  18. ELIGARD [Concomitant]
     Active Substance: LEUPROLIDE ACETATE
     Indication: PROSTATE CANCER STAGE IV
     Dosage: 45 MG DAILY
     Dates: start: 2005
  19. MORPHINE [Concomitant]
     Active Substance: MORPHINE
     Dosage: 15 MG, BID
  20. TENORETIC [Concomitant]
     Active Substance: ATENOLOL\CHLORTHALIDONE
     Dosage: 1 TAB (50/25 MG) ONCE DAILY
     Route: 048
  21. ZYTIGA [Concomitant]
     Active Substance: ABIRATERONE ACETATE
     Indication: PROSTATE CANCER STAGE IV
     Dosage: 500 MG, QD
     Route: 048
     Dates: start: 20130626
  22. RANITIDINE [Concomitant]
     Active Substance: RANITIDINE\RANITIDINE HYDROCHLORIDE
     Indication: GASTROOESOPHAGEAL REFLUX DISEASE
     Dosage: 150 MG, PRN
     Route: 048
     Dates: start: 2013
  23. PREDNISOLONE. [Concomitant]
     Active Substance: PREDNISOLONE
     Indication: GLAUCOMA
     Dosage: 2 DROP
     Route: 042
     Dates: start: 20121004
  24. XGEVA [Concomitant]
     Active Substance: DENOSUMAB
     Dosage: 120 MG DAILY
     Dates: start: 20121019
  25. WARFARIN [Concomitant]
     Active Substance: WARFARIN
     Indication: DEEP VEIN THROMBOSIS
     Dosage: 2.5 MG DAILY
     Route: 048
     Dates: start: 20140716

REACTIONS (3)
  - Haemorrhoidal haemorrhage [Recovered/Resolved]
  - Enterocolitis infectious [Recovered/Resolved]
  - Dehydration [Recovered/Resolved]

NARRATIVE: CASE EVENT DATE: 20141004
